FAERS Safety Report 4605947-9 (Version None)
Quarter: 2005Q1

REPORT INFORMATION
  Report Type: 
  Country: None (occurrence: None)
  Receive Date: 20050311
  Receipt Date: 20041221
  Transmission Date: 20050727
  Serious: Yes (Hospitalization)
  Sender: FDA-Public Use
  Company Number: US-GLAXOSMITHKLINE-A0538230A

PATIENT
  Age: 40 Year
  Sex: Female
  Weight: 57.3 kg

DRUGS (2)
  1. PAXIL [Suspect]
     Indication: PANIC DISORDER
     Dosage: 5MG ALTERNATE DAYS
     Route: 048
     Dates: start: 20021201, end: 20050101
  2. NO CONCURRENT MEDICATION [Concomitant]

REACTIONS (12)
  - CHEST DISCOMFORT [None]
  - CRYING [None]
  - DISABILITY [None]
  - DIZZINESS [None]
  - DRUG WITHDRAWAL SYNDROME [None]
  - ENURESIS [None]
  - FATIGUE [None]
  - INFLUENZA LIKE ILLNESS [None]
  - IRRITABILITY [None]
  - NIGHTMARE [None]
  - PAIN [None]
  - SUICIDAL IDEATION [None]
